FAERS Safety Report 6544189-7 (Version None)
Quarter: 2010Q1

REPORT INFORMATION
  Report Type: 
  Country: None (occurrence: None)
  Receive Date: 20100119
  Receipt Date: 20100119
  Transmission Date: 20100710
  Serious: Yes (Other)
  Sender: FDA-Public Use
  Company Number: None

PATIENT
  Age: 70 Year
  Sex: Male
  Weight: 77.1115 kg

DRUGS (1)
  1. ROLAIDS MULTI - SYSTOM J+J [Suspect]
     Indication: UNEVALUABLE EVENT
     Dosage: 2 TO 4 TABS AS NEEDED PO
     Route: 048
     Dates: start: 20090701, end: 20091230

REACTIONS (1)
  - ABDOMINAL PAIN LOWER [None]
